FAERS Safety Report 6076575-6 (Version None)
Quarter: 2009Q1

REPORT INFORMATION
  Report Type: 
  Country: None (occurrence: None)
  Receive Date: 20090209
  Receipt Date: 20090202
  Transmission Date: 20090719
  Serious: Yes (Death, Life-Threatening)
  Sender: FDA-Public Use
  Company Number: 2009JP000005

PATIENT
  Age: 70 Year
  Sex: Female

DRUGS (9)
  1. PROGRAF [Suspect]
     Indication: RHEUMATOID ARTHRITIS
     Dosage: 1 MG, /D, ORAL ; 1.5 MG, /D, ORAL ; 2 MG, /D, ORAL ; 2.5 MG, /D, ORAL
     Route: 048
     Dates: start: 20080716, end: 20080731
  2. PROGRAF [Suspect]
     Indication: RHEUMATOID ARTHRITIS
     Dosage: 1 MG, /D, ORAL ; 1.5 MG, /D, ORAL ; 2 MG, /D, ORAL ; 2.5 MG, /D, ORAL
     Route: 048
     Dates: start: 20080801, end: 20080826
  3. PROGRAF [Suspect]
     Indication: RHEUMATOID ARTHRITIS
     Dosage: 1 MG, /D, ORAL ; 1.5 MG, /D, ORAL ; 2 MG, /D, ORAL ; 2.5 MG, /D, ORAL
     Route: 048
     Dates: start: 20080827, end: 20081126
  4. PROGRAF [Suspect]
     Indication: RHEUMATOID ARTHRITIS
     Dosage: 1 MG, /D, ORAL ; 1.5 MG, /D, ORAL ; 2 MG, /D, ORAL ; 2.5 MG, /D, ORAL
     Route: 048
     Dates: start: 20081127
  5. LANSOPRAZOLE [Suspect]
     Dosage: ORAL
     Route: 048
  6. MINOCYCLINE HYDROCHLORIDE [Suspect]
     Dosage: 7.5 MG, /D, ORAL
     Route: 048
  7. PREDNISOLONE [Suspect]
     Dosage: 7.5 MG, /D, ORAL
     Route: 048
  8. ZYLORIC (ALLOPURINOL SODIUM) [Concomitant]
  9. BIOFERMIN R (STREPTOCOCCUS FAECALIS) [Concomitant]

REACTIONS (1)
  - LYMPHOCYTE COUNT DECREASED [None]
